FAERS Safety Report 21500334 (Version 1)
Quarter: 2022Q4

REPORT INFORMATION
  Report Type: Spontaneous
  Country: US (occurrence: None)
  Receive Date: 20221024
  Receipt Date: 20221024
  Transmission Date: 20230113
  Serious: Yes (Hospitalization, Disabling)
  Sender: FDA-Public Use
  Company Number: None

PATIENT
  Age: 85 Year
  Sex: Male
  Weight: 34.02 kg

DRUGS (8)
  1. ABIRATERONE [Suspect]
     Active Substance: ABIRATERONE
     Indication: Prostate cancer
     Dosage: FREQUENCY : DAILY;?
     Route: 048
     Dates: start: 2021
  2. ELIQUIS [Concomitant]
     Active Substance: APIXABAN
  3. ALBUTEROL NEBULIZER SOLUTION [Concomitant]
  4. PREDNISONE [Suspect]
     Active Substance: PREDNISONE
  5. ONDANSETRON [Concomitant]
     Active Substance: ONDANSETRON
  6. DILTIAZEM [Concomitant]
     Active Substance: DILTIAZEM
  7. LPRATROPIUM [Concomitant]
  8. TORSEMIDE [Concomitant]
     Active Substance: TORSEMIDE

REACTIONS (2)
  - Pneumonia [None]
  - Therapy interrupted [None]

NARRATIVE: CASE EVENT DATE: 20221003
